FAERS Safety Report 6359226-2 (Version None)
Quarter: 2009Q3

REPORT INFORMATION
  Report Type: 
  Country: None (occurrence: None)
  Receive Date: 20090917
  Receipt Date: 20090904
  Transmission Date: 20100115
  Serious: Yes (Other)
  Sender: FDA-Public Use
  Company Number: PHHY2008JP21184

PATIENT

DRUGS (1)
  1. ZOMETA [Suspect]
     Indication: BONE LESION

REACTIONS (1)
  - OSTEONECROSIS [None]
